FAERS Safety Report 6370821-7 (Version None)
Quarter: 2009Q3

REPORT INFORMATION
  Report Type: 
  Country: None (occurrence: None)
  Receive Date: 20090923
  Receipt Date: 20070608
  Transmission Date: 20100115
  Serious: No
  Sender: FDA-Public Use
  Company Number: US-ASTRAZENECA-2006UW24723

PATIENT
  Age: 691 Month
  Sex: Male
  Weight: 98.4 kg

DRUGS (15)
  1. SEROQUEL [Suspect]
     Indication: SLEEP DISORDER
     Route: 048
     Dates: start: 20041101, end: 20041201
  2. SEROQUEL [Suspect]
     Dosage: 100-200 MG
     Route: 048
     Dates: end: 20080511
  3. HALDOL [Concomitant]
  4. FLURAZINE [Concomitant]
  5. VENLAFAXINE HYDROCHLORIDE [Concomitant]
     Dates: start: 20030401, end: 20080511
  6. ALPRAZOLAM [Concomitant]
     Dates: start: 20070511, end: 20071111
  7. DIPHENHYDRAMINE HYDROCHLORIDE [Concomitant]
     Dates: start: 20060918, end: 20070919
  8. CLONAZEPAM [Concomitant]
     Dates: start: 20060918, end: 20070321
  9. TRAZODONE HYDROCHLORIDE [Concomitant]
     Dates: start: 20000105, end: 20060211
  10. DIVALPROEX SODIUM [Concomitant]
     Dates: start: 19961030, end: 20050918
  11. DIAZEPAM [Concomitant]
     Dates: start: 19961030, end: 20070530
  12. GLIPIZIDE [Concomitant]
  13. LISINOPRIL [Concomitant]
  14. METFORMIN HYDROCHLORIDE [Concomitant]
  15. ATORVASTATIN [Concomitant]

REACTIONS (23)
  - ADRENAL MASS [None]
  - ARTHRITIS [None]
  - BACK PAIN [None]
  - BLEPHARITIS [None]
  - CERUMEN IMPACTION [None]
  - CHALAZION [None]
  - CHRONIC OBSTRUCTIVE PULMONARY DISEASE [None]
  - DENTAL CARIES [None]
  - DERMATITIS EXFOLIATIVE GENERALISED [None]
  - DIABETES MELLITUS [None]
  - EYELID INFECTION [None]
  - FOLLICULITIS [None]
  - HEPATIC STEATOSIS [None]
  - HORDEOLUM [None]
  - HYPERLIPIDAEMIA [None]
  - INSOMNIA [None]
  - PERIODONTITIS [None]
  - PRESBYOPIA [None]
  - PULPITIS DENTAL [None]
  - RASH [None]
  - RECTAL HAEMORRHAGE [None]
  - TOOTH DEPOSIT [None]
  - TOOTH DISORDER [None]
